FAERS Safety Report 9291128 (Version 1)
Quarter: 2013Q2

REPORT INFORMATION
  Report Type: Spontaneous
  Country: US (occurrence: US)
  Receive Date: 20130515
  Receipt Date: 20130515
  Transmission Date: 20140414
  Serious: Yes (Hospitalization)
  Sender: FDA-Public Use
  Company Number: US-BAYER-2013-060581

PATIENT
  Age: 39 Year
  Sex: Female
  Weight: 93.88 kg

DRUGS (1)
  1. YASMIN [Suspect]
     Indication: CONTRACEPTION

REACTIONS (1)
  - Deep vein thrombosis [None]
